FAERS Safety Report 19909677 (Version 2)
Quarter: 2021Q4

REPORT INFORMATION
  Report Type: Report from Study
  Country: CA (occurrence: CA)
  Receive Date: 20211002
  Receipt Date: 20211018
  Transmission Date: 20220303
  Serious: Yes (Hospitalization)
  Sender: FDA-Public Use
  Company Number: CA-TAKEDA-2021TUS060219

PATIENT
  Age: 84 Year
  Sex: Female

DRUGS (7)
  1. VEDOLIZUMAB [Suspect]
     Active Substance: VEDOLIZUMAB
     Indication: Colitis ulcerative
     Dosage: 300 MILLIGRAM
     Route: 042
     Dates: start: 20201028
  2. VEDOLIZUMAB [Suspect]
     Active Substance: VEDOLIZUMAB
     Dosage: 300 MILLIGRAM, Q4WEEKS
     Route: 042
     Dates: start: 20210317
  3. Salofalk [Concomitant]
     Dosage: UNK
     Dates: start: 202008
  4. XARELTO [Concomitant]
     Active Substance: RIVAROXABAN
     Indication: Arrhythmia
     Dosage: UNK
  5. LANOXIN [Concomitant]
     Active Substance: DIGOXIN
     Indication: Arrhythmia
     Dosage: UNK
  6. LASIX [Concomitant]
     Active Substance: FUROSEMIDE
     Indication: Arrhythmia
  7. ALDACTONE [Concomitant]
     Active Substance: SPIRONOLACTONE
     Indication: Arrhythmia
     Dosage: UNK

REACTIONS (3)
  - Rib fracture [Unknown]
  - Road traffic accident [Unknown]
  - Off label use [Unknown]

NARRATIVE: CASE EVENT DATE: 20210317
